FAERS Safety Report 5163245-1 (Version None)
Quarter: 2006Q4

REPORT INFORMATION
  Report Type: 
  Country: None (occurrence: None)
  Receive Date: 20061204
  Receipt Date: 20050512
  Transmission Date: 20070319
  Serious: Yes (Other)
  Sender: FDA-Public Use
  Company Number: PHHO2005CA07704

PATIENT
  Age: 38 Year
  Sex: Male

DRUGS (21)
  1. CLOZAPINE [Suspect]
     Dosage: 200 MG BID AND 275 MG QHS
     Route: 048
     Dates: start: 20020812
  2. CLOZAPINE [Suspect]
     Dosage: DECREASED TO 100 MG BID AND 300 MG QHS
     Route: 048
     Dates: start: 20031022
  3. CLOZAPINE [Suspect]
     Dosage: 525 MG QHS
     Route: 048
     Dates: start: 20041101
  4. CLOZAPINE [Suspect]
     Dosage: 550 MG QHS
     Route: 048
  5. CLOZAPINE [Suspect]
     Dosage: DECREASE TO 100 MG BID AND 200 MG QHS
     Route: 048
     Dates: start: 20040426
  6. REMERON [Concomitant]
     Dosage: 45 MG DAILY
     Dates: start: 20031022
  7. REMERON [Concomitant]
     Dosage: 60 MG QHS
  8. BENZTROPINE MESYLATE [Concomitant]
     Dosage: 2 MG, QHS
  9. ZANTAC [Concomitant]
     Dosage: 150 MG, BID
     Dates: start: 20040426
  10. FLUVOXAMINE MALEATE [Concomitant]
     Dosage: 25 MG, QHS
     Dates: start: 20040819
  11. FLURAZEPAM [Concomitant]
     Dosage: 15 MG, QHS
  12. LIPITOR [Concomitant]
     Dosage: 10 MG, QD
  13. LOXAPINE [Concomitant]
     Dosage: 25 MG TID AND 75 MG QHS
  14. ATIVAN [Concomitant]
     Dosage: 2 MG, BID PRN
     Dates: start: 20050419
  15. ATROPINE [Concomitant]
     Dosage: 2 GTTS TO MOUTH QHS
     Route: 048
  16. RISPERIDONE [Concomitant]
     Dosage: 0.5 MG QAM AND 2 MG QHS
     Dates: start: 20031202
  17. RISPERIDONE [Concomitant]
     Dosage: 0.25 MG PRN
     Dates: start: 20040331
  18. RISPERIDONE [Concomitant]
     Dosage: 4 MG, QD
  19. RISPERIDONE [Concomitant]
     Dosage: 2 MG, QD
     Dates: start: 20040426
  20. RIVOTRIL [Concomitant]
     Dosage: 0.5 MG, QHS
     Dates: start: 20040426
  21. COLACE [Concomitant]
     Dosage: 100 MG, BID PRN
     Dates: start: 20040426

REACTIONS (2)
  - SYNCOPE [None]
  - VENTRICULAR HYPERTROPHY [None]
